FAERS Safety Report 18268413 (Version 1)
Quarter: 2020Q3

REPORT INFORMATION
  Report Type: Spontaneous
  Country: US (occurrence: US)
  Receive Date: 20200915
  Receipt Date: 20200915
  Transmission Date: 20201103
  Serious: No
  Sender: FDA-Public Use
  Company Number: US-KVK-TECH, INC-2090741

PATIENT
  Sex: Female

DRUGS (3)
  1. METHYLPHENIDATE HYDROCHLORIDE. [Suspect]
     Active Substance: METHYLPHENIDATE HYDROCHLORIDE
     Indication: BEHAVIOUR DISORDER
     Route: 048
     Dates: start: 201905
  2. BUPROPION XL [Concomitant]
     Active Substance: BUPROPION
     Route: 065
  3. IBUPROFEN. [Concomitant]
     Active Substance: IBUPROFEN
     Route: 065

REACTIONS (1)
  - Drug ineffective [Unknown]
